FAERS Safety Report 8620695-6 (Version None)
Quarter: 2012Q3

REPORT INFORMATION
  Report Type: 
  Country: None (occurrence: None)
  Receive Date: 20120824
  Receipt Date: 20120815
  Transmission Date: 20120928
  Serious: Yes (Other)
  Sender: FDA-Public Use
  Company Number: CA-JNJFOC-20120808196

PATIENT
  Sex: Male
  Weight: 92 kg

DRUGS (5)
  1. REMICADE [Suspect]
     Route: 042
     Dates: start: 20120510
  2. DESLORATADINE [Concomitant]
     Indication: PREMEDICATION
     Route: 048
  3. TYLENOL [Concomitant]
     Indication: PREMEDICATION
     Route: 048
  4. PERINDOPRIL ERBUMINE [Concomitant]
     Route: 065
  5. REMICADE [Suspect]
     Indication: PSORIASIS
     Route: 042
     Dates: start: 20120815

REACTIONS (4)
  - INFUSION RELATED REACTION [None]
  - EYE OEDEMA [None]
  - THROAT TIGHTNESS [None]
  - LACRIMATION INCREASED [None]
